FAERS Safety Report 5649447-6 (Version None)
Quarter: 2008Q1

REPORT INFORMATION
  Report Type: 
  Country: None (occurrence: None)
  Receive Date: 20080304
  Receipt Date: 20070906
  Transmission Date: 20080703
  Serious: Yes (Hospitalization)
  Sender: FDA-Public Use
  Company Number: BR-BAYER-200713565GDS

PATIENT
  Age: 81 Year
  Sex: Female
  Weight: 55 kg

DRUGS (52)
  1. SORAFENIB [Suspect]
     Indication: NON-SMALL CELL LUNG CANCER
     Route: 048
     Dates: start: 20070101
  2. SORAFENIB [Suspect]
     Dosage: TOTAL DAILY DOSE: 800 MG
     Route: 048
     Dates: start: 20070614, end: 20070621
  3. SORAFENIB [Suspect]
     Dosage: TOTAL DAILY DOSE: 800 MG
     Route: 048
     Dates: start: 20070526, end: 20070611
  4. SORAFENIB [Suspect]
     Dosage: TOTAL DAILY DOSE: 800 MG
     Route: 048
     Dates: start: 20070625, end: 20070709
  5. SORAFENIB [Suspect]
     Dosage: TOTAL DAILY DOSE: 800 MG
     Route: 048
     Dates: start: 20070414, end: 20070415
  6. SORAFENIB [Suspect]
     Dosage: TOTAL DAILY DOSE: 800 MG
     Route: 048
     Dates: start: 20070417, end: 20070419
  7. SORAFENIB [Suspect]
     Dosage: TOTAL DAILY DOSE: 800 MG
     Route: 048
     Dates: start: 20070505, end: 20070522
  8. SORAFENIB [Suspect]
     Dosage: TOTAL DAILY DOSE: 800 MG
     Route: 048
     Dates: start: 20070421, end: 20070501
  9. CARBOPLATIN [Suspect]
     Indication: NON-SMALL CELL LUNG CANCER
     Route: 065
     Dates: start: 20070525, end: 20070525
  10. CARBOPLATIN [Suspect]
     Route: 065
     Dates: start: 20070504, end: 20070504
  11. CARBOPLATIN [Suspect]
     Route: 065
     Dates: start: 20070413, end: 20070413
  12. CARBOPLATIN [Suspect]
     Route: 065
     Dates: start: 20070613, end: 20070613
  13. PACLITAXEL [Suspect]
     Indication: NON-SMALL CELL LUNG CANCER
     Route: 065
     Dates: start: 20070504, end: 20070504
  14. PACLITAXEL [Suspect]
     Route: 065
     Dates: start: 20070613, end: 20070613
  15. PACLITAXEL [Suspect]
     Route: 065
     Dates: start: 20070525, end: 20070525
  16. PACLITAXEL [Suspect]
     Route: 065
     Dates: start: 20070413, end: 20070413
  17. OMEPRAZOLE [Concomitant]
     Indication: PROPHYLAXIS
     Route: 048
     Dates: start: 20070622, end: 20070622
  18. OMEPRAZOLE [Concomitant]
     Route: 048
     Dates: start: 20070624, end: 20070627
  19. OMEPRAZOLE [Concomitant]
     Route: 048
     Dates: start: 20070629, end: 20070702
  20. AMITRIPTYLINE HCL [Concomitant]
     Indication: NEUROPATHY PERIPHERAL
     Route: 048
     Dates: start: 20070525
  21. AMITRIPTYLINE HCL [Concomitant]
     Route: 065
     Dates: start: 20070625, end: 20070625
  22. AMITRIPTYLINE HCL [Concomitant]
     Route: 065
     Dates: start: 20070628, end: 20070701
  23. AMITRIPTYLINE HCL [Concomitant]
     Route: 065
     Dates: start: 20070626, end: 20070627
  24. CODATE [Concomitant]
     Indication: ANALGESIC INTERVENTION SUPPORTIVE THERAPY
     Route: 048
     Dates: start: 20070622, end: 20070622
  25. CODATE [Concomitant]
     Route: 048
     Dates: start: 20070515, end: 20070524
  26. OSCAL D [Concomitant]
     Indication: OSTEOPOROSIS PROPHYLAXIS
     Route: 048
     Dates: start: 20030101
  27. LACIPIL [Concomitant]
     Indication: HYPERTENSION
     Route: 048
     Dates: start: 19970101
  28. CETOPROFENO [Concomitant]
     Indication: PAIN
     Route: 065
     Dates: start: 20070416, end: 20070416
  29. DIGESAN [Concomitant]
     Indication: PAIN
     Route: 065
     Dates: start: 20070420, end: 20070420
  30. DIGESAN [Concomitant]
     Route: 065
     Dates: start: 20070416, end: 20070416
  31. NOVALGINA [Concomitant]
     Indication: PAIN
     Route: 065
     Dates: start: 20070416, end: 20070416
  32. TRAMADOL G [Concomitant]
     Indication: PAIN
     Route: 065
     Dates: start: 20070416, end: 20070416
  33. DISGREN [Concomitant]
     Indication: THROMBOSIS PROPHYLAXIS
     Route: 065
     Dates: start: 20050101, end: 20070404
  34. PLASIL [Concomitant]
     Indication: VOMITING
     Route: 065
     Dates: start: 20070425
  35. PLASIL [Concomitant]
     Route: 065
     Dates: start: 20070420, end: 20070420
  36. BUSCOPAN COMPOSTO [Concomitant]
     Indication: ABDOMINAL PAIN
     Route: 065
     Dates: start: 20070420, end: 20070420
  37. POLARYN [Concomitant]
     Indication: ANTIALLERGIC THERAPY
     Route: 065
     Dates: start: 20070518, end: 20070524
  38. POLARYN [Concomitant]
     Route: 065
     Dates: start: 20070509, end: 20070509
  39. TRIMEDAL [Concomitant]
     Indication: NASAL CONGESTION
     Route: 065
     Dates: start: 20070509, end: 20070509
  40. CLEXANE [Concomitant]
     Indication: THROMBOSIS PROPHYLAXIS
     Route: 058
     Dates: start: 20070627, end: 20070701
  41. HALDOL [Concomitant]
     Indication: CONFUSIONAL STATE
     Route: 048
     Dates: start: 20070627, end: 20070701
  42. HALDOL [Concomitant]
     Route: 048
     Dates: start: 20070702, end: 20070702
  43. DECADRON [Concomitant]
     Indication: VOMITING
     Route: 042
     Dates: start: 20070627, end: 20070630
  44. DECADRON [Concomitant]
     Route: 048
     Dates: start: 20070701, end: 20070701
  45. MORFINA [Concomitant]
     Indication: ANALGESIC INTERVENTION SUPPORTIVE THERAPY
     Route: 042
     Dates: start: 20070624, end: 20070625
  46. AMOXICILLIN + CLAVULANATE POTASSIUM [Concomitant]
     Indication: ANTIBIOTIC PROPHYLAXIS
     Route: 042
     Dates: start: 20070624, end: 20070628
  47. AMOXICILLIN + CLAVULANATE POTASSIUM [Concomitant]
     Route: 048
     Dates: start: 20070629
  48. TILATIL [Concomitant]
     Indication: PERIPHERAL SENSORY NEUROPATHY
     Route: 042
     Dates: start: 20070624, end: 20070627
  49. RIVOTRIL [Concomitant]
     Indication: INSOMNIA
     Route: 048
     Dates: start: 20070623, end: 20070623
  50. RIVOTRIL [Concomitant]
     Route: 048
     Dates: start: 20070624, end: 20070626
  51. ACETAMINOPHEN W/ CODEINE [Concomitant]
     Indication: PERIPHERAL SENSORY NEUROPATHY
     Route: 065
     Dates: start: 20070624, end: 20070624
  52. ACETAMINOPHEN W/ CODEINE [Concomitant]
     Route: 065
     Dates: start: 20070623, end: 20070623

REACTIONS (9)
  - ANAEMIA [None]
  - ANOREXIA [None]
  - CONSTIPATION [None]
  - DEHYDRATION [None]
  - NEUTROPENIA [None]
  - PAIN IN EXTREMITY [None]
  - SUBCUTANEOUS NODULE [None]
  - THROMBOCYTOPENIA [None]
  - VOMITING [None]
